FAERS Safety Report 21239446 (Version 2)
Quarter: 2022Q4

REPORT INFORMATION
  Report Type: Spontaneous
  Country: JP (occurrence: JP)
  Receive Date: 20220822
  Receipt Date: 20221029
  Transmission Date: 20230113
  Serious: Yes (Hospitalization)
  Sender: FDA-Public Use
  Company Number: JP-TAKEDA-2022TJP070222

PATIENT
  Age: 10 Year
  Sex: Female
  Weight: 35.7 kg

DRUGS (6)
  1. LEUPLIN [Suspect]
     Active Substance: LEUPROLIDE ACETATE
     Indication: Precocious puberty
     Dosage: 1.88 MILLIGRAM, Q4WEEKS
     Route: 058
     Dates: start: 20210625, end: 20220528
  2. LEUPLIN [Suspect]
     Active Substance: LEUPROLIDE ACETATE
     Indication: Precocious puberty
     Dosage: 3.75 MILLIGRAM, Q4WEEKS
     Route: 058
     Dates: start: 20220107
  3. LEUPLIN [Suspect]
     Active Substance: LEUPROLIDE ACETATE
     Dosage: 103 MICROGRAM/KILOGRAM
     Route: 058
     Dates: start: 20220607
  4. LEUPLIN [Suspect]
     Active Substance: LEUPROLIDE ACETATE
     Dosage: 57 MICROGRAM/KILOGRAM, Q4WEEKS
     Route: 058
     Dates: start: 20210820
  5. LEUPLIN [Suspect]
     Active Substance: LEUPROLIDE ACETATE
     Dosage: 106 MICROGRAM/KILOGRAM
     Route: 058
     Dates: start: 20220401, end: 20220528
  6. LEUPLIN [Suspect]
     Active Substance: LEUPROLIDE ACETATE
     Dosage: 105 MICROGRAM/KILOGRAM
     Route: 058
     Dates: start: 20220723, end: 20220723

REACTIONS (9)
  - Injection site ulcer [Recovered/Resolved with Sequelae]
  - Injection site pain [Unknown]
  - Injection site abscess [Not Recovered/Not Resolved]
  - Injection site induration [Unknown]
  - Injection site extravasation [Unknown]
  - Injection site haemorrhage [Unknown]
  - Injection site erythema [Unknown]
  - Pruritus [Recovering/Resolving]
  - Injection site swelling [Unknown]

NARRATIVE: CASE EVENT DATE: 20220401
